FAERS Safety Report 7120389-2 (Version None)
Quarter: 2010Q4

REPORT INFORMATION
  Report Type: 
  Country: None (occurrence: None)
  Receive Date: 20101124
  Receipt Date: 20101117
  Transmission Date: 20110411
  Serious: Yes (Hospitalization)
  Sender: FDA-Public Use
  Company Number: US-BIOGENIDEC-2010BI040660

PATIENT
  Age: 34 Year
  Sex: Female

DRUGS (3)
  1. AVONEX [Suspect]
     Indication: MULTIPLE SCLEROSIS
     Route: 030
     Dates: start: 20100902, end: 20100923
  2. AVONEX [Suspect]
     Route: 030
     Dates: start: 20080901, end: 20081121
  3. AVONEX [Suspect]
     Route: 030
     Dates: start: 20040422, end: 20060529

REACTIONS (2)
  - BLINDNESS [None]
  - HYPOAESTHESIA [None]
